FAERS Safety Report 13174830 (Version 1)
Quarter: 2017Q1

REPORT INFORMATION
  Report Type: Spontaneous
  Country: US (occurrence: US)
  Receive Date: 20170201
  Receipt Date: 20170201
  Transmission Date: 20170428
  Serious: No
  Sender: FDA-Public Use
  Company Number: US-ABBVIE-16K-163-1579653-00

PATIENT
  Age: 26 Year
  Sex: Female
  Weight: 61.29 kg

DRUGS (7)
  1. VITAMIN B12 [Concomitant]
     Active Substance: CYANOCOBALAMIN
     Indication: PRODUCT USED FOR UNKNOWN INDICATION
  2. HUMIRA [Suspect]
     Active Substance: ADALIMUMAB
     Indication: CROHN^S DISEASE
     Route: 058
     Dates: start: 201406, end: 201406
  3. HUMIRA [Suspect]
     Active Substance: ADALIMUMAB
     Dosage: TWO WEEKS LATER
     Route: 058
     Dates: start: 201406, end: 201406
  4. CALCIUM [Concomitant]
     Active Substance: CALCIUM
     Indication: PRODUCT USED FOR UNKNOWN INDICATION
  5. PREDNISONE. [Concomitant]
     Active Substance: PREDNISONE
     Indication: PRODUCT USED FOR UNKNOWN INDICATION
  6. HUMIRA [Suspect]
     Active Substance: ADALIMUMAB
     Dosage: TWO WEEKS LATER
     Route: 058
     Dates: start: 2014, end: 201601
  7. IRON [Concomitant]
     Active Substance: IRON
     Indication: PRODUCT USED FOR UNKNOWN INDICATION

REACTIONS (5)
  - Mastitis [Recovered/Resolved]
  - Genital rash [Not Recovered/Not Resolved]
  - Female genital tract fistula [Not Recovered/Not Resolved]
  - Rash [Not Recovered/Not Resolved]
  - Suppressed lactation [Recovered/Resolved]

NARRATIVE: CASE EVENT DATE: 20151009
